FAERS Safety Report 10778931 (Version 1)
Quarter: 2015Q1

REPORT INFORMATION
  Report Type: Spontaneous
  Country: US (occurrence: None)
  Receive Date: 20150206
  Receipt Date: 20150206
  Transmission Date: 20150721
  Serious: Yes (Other)
  Sender: FDA-Public Use
  Company Number: ADR-2015-00250

PATIENT
  Age: 74 Year
  Sex: Female

DRUGS (1)
  1. COMPOUNDED BACLOFEN INTRATHECAL - 2,000MCG/ML [Suspect]
     Active Substance: BACLOFEN
     Indication: MUSCLE SPASTICITY

REACTIONS (3)
  - Erythema [None]
  - Medical device site reaction [None]
  - Wound decomposition [None]
